FAERS Safety Report 5028174-2 (Version None)
Quarter: 2006Q2

REPORT INFORMATION
  Report Type: 
  Country: None (occurrence: None)
  Receive Date: 20060613
  Receipt Date: 20060531
  Transmission Date: 20061013
  Serious: Yes (Hospitalization, Other)
  Sender: FDA-Public Use
  Company Number: 2006061017

PATIENT
  Sex: Female
  Weight: 63.5036 kg

DRUGS (1)
  1. LYRICA [Suspect]
     Indication: LUMBAR RADICULOPATHY
     Dosage: 50 MG, ORAL
     Route: 048

REACTIONS (5)
  - CEREBROVASCULAR SPASM [None]
  - COMPUTERISED TOMOGRAM ABNORMAL [None]
  - HEADACHE [None]
  - HYPERTENSION [None]
  - LUMBAR PUNCTURE ABNORMAL [None]
